FAERS Safety Report 6529892-7 (Version None)
Quarter: 2010Q1

REPORT INFORMATION
  Report Type: 
  Country: None (occurrence: None)
  Receive Date: 20100107
  Receipt Date: 20100106
  Transmission Date: 20100710
  Serious: Yes (Other)
  Sender: FDA-Public Use
  Company Number: A0838024A

PATIENT
  Age: 62 Year
  Sex: Male

DRUGS (2)
  1. ADVAIR DISKUS 100/50 [Suspect]
     Indication: CHRONIC OBSTRUCTIVE PULMONARY DISEASE
     Dosage: 1PUFF PER DAY
     Route: 055
     Dates: start: 20081101
  2. ALBUTEROL [Concomitant]

REACTIONS (3)
  - CATARACT [None]
  - DRUG INEFFECTIVE [None]
  - DYSPNOEA [None]
